FAERS Safety Report 21194778 (Version 2)
Quarter: 2022Q3

REPORT INFORMATION
  Report Type: Other
  Country: US (occurrence: None)
  Receive Date: 20220810
  Receipt Date: 20220821
  Transmission Date: 20221026
  Serious: Yes (Death, Hospitalization)
  Sender: FDA-Public Use
  Company Number: US-ROCHE-3154887

PATIENT
  Sex: Female

DRUGS (2)
  1. OCREVUS [Suspect]
     Active Substance: OCRELIZUMAB
     Indication: Primary progressive multiple sclerosis
     Dosage: DATE OF TREATMENT: 18/FEB/2018, 25/JUL/2021, 02/FEB/2021, 14/SEP/2021
     Route: 042
     Dates: start: 202108
  2. RITUXAN [Suspect]
     Active Substance: RITUXIMAB
     Indication: Multiple sclerosis
     Route: 065

REACTIONS (4)
  - COVID-19 [Fatal]
  - Off label use [Unknown]
  - Pneumonia [Fatal]
  - Hepatic enzyme increased [Fatal]
